FAERS Safety Report 16809865 (Version 2)
Quarter: 2019Q4

REPORT INFORMATION
  Report Type: Spontaneous
  Country: US (occurrence: US)
  Receive Date: 20190916
  Receipt Date: 20191111
  Transmission Date: 20200122
  Serious: No
  Sender: FDA-Public Use
  Company Number: US-AMGEN-USASP2019148627

PATIENT
  Age: 70 Year
  Sex: Female
  Weight: 78.1 kg

DRUGS (1)
  1. ENBREL [Suspect]
     Active Substance: ETANERCEPT
     Indication: RHEUMATOID ARTHRITIS
     Dosage: 50 MILLIGRAM, QWK
     Route: 058
     Dates: start: 20190816

REACTIONS (6)
  - Blood alkaline phosphatase increased [Unknown]
  - Transaminases increased [Unknown]
  - Fatigue [Unknown]
  - Weight increased [Unknown]
  - Wrong technique in product usage process [Unknown]
  - Hepatic steatosis [Unknown]

NARRATIVE: CASE EVENT DATE: 20190816
